FAERS Safety Report 23453330 (Version 21)
Quarter: 2025Q1

REPORT INFORMATION
  Report Type: Spontaneous
  Country: GB (occurrence: GB)
  Receive Date: 20240129
  Receipt Date: 20250213
  Transmission Date: 20250408
  Serious: Yes (Other)
  Sender: MYLAN
  Company Number: None

PATIENT
  Age: 38 Year
  Sex: Male
  Weight: 104 kg

DRUGS (733)
  1. LERCANIDIPINE [Suspect]
     Active Substance: LERCANIDIPINE
     Indication: Blood cholesterol increased
     Route: 065
  2. LERCANIDIPINE [Suspect]
     Active Substance: LERCANIDIPINE
     Indication: Hypertension
     Route: 065
  3. LERCANIDIPINE [Suspect]
     Active Substance: LERCANIDIPINE
     Indication: Depression
     Route: 065
  4. LERCANIDIPINE [Suspect]
     Active Substance: LERCANIDIPINE
     Indication: Hypercholesterolaemia
     Route: 065
  5. LERCANIDIPINE [Suspect]
     Active Substance: LERCANIDIPINE
     Route: 065
  6. LERCANIDIPINE [Suspect]
     Active Substance: LERCANIDIPINE
     Route: 065
  7. LERCANIDIPINE [Suspect]
     Active Substance: LERCANIDIPINE
     Route: 065
  8. LERCANIDIPINE [Suspect]
     Active Substance: LERCANIDIPINE
     Route: 065
  9. LERCANIDIPINE [Suspect]
     Active Substance: LERCANIDIPINE
     Route: 065
  10. LERCANIDIPINE [Suspect]
     Active Substance: LERCANIDIPINE
     Route: 065
  11. LERCANIDIPINE [Suspect]
     Active Substance: LERCANIDIPINE
     Route: 065
  12. LERCANIDIPINE [Suspect]
     Active Substance: LERCANIDIPINE
     Route: 065
  13. LERCANIDIPINE [Suspect]
     Active Substance: LERCANIDIPINE
     Route: 065
  14. LERCANIDIPINE [Suspect]
     Active Substance: LERCANIDIPINE
     Route: 065
  15. LERCANIDIPINE [Suspect]
     Active Substance: LERCANIDIPINE
     Route: 065
  16. LERCANIDIPINE [Suspect]
     Active Substance: LERCANIDIPINE
     Route: 065
  17. LERCANIDIPINE [Suspect]
     Active Substance: LERCANIDIPINE
     Route: 065
  18. LERCANIDIPINE [Suspect]
     Active Substance: LERCANIDIPINE
     Route: 065
  19. LERCANIDIPINE [Suspect]
     Active Substance: LERCANIDIPINE
     Route: 065
  20. LERCANIDIPINE [Suspect]
     Active Substance: LERCANIDIPINE
     Route: 065
  21. LERCANIDIPINE [Suspect]
     Active Substance: LERCANIDIPINE
     Route: 065
  22. LERCANIDIPINE [Suspect]
     Active Substance: LERCANIDIPINE
     Route: 065
  23. LERCANIDIPINE [Suspect]
     Active Substance: LERCANIDIPINE
     Route: 065
  24. LERCANIDIPINE [Suspect]
     Active Substance: LERCANIDIPINE
     Route: 065
  25. LERCANIDIPINE [Suspect]
     Active Substance: LERCANIDIPINE
     Route: 065
  26. LERCANIDIPINE [Suspect]
     Active Substance: LERCANIDIPINE
     Route: 065
  27. LERCANIDIPINE [Suspect]
     Active Substance: LERCANIDIPINE
     Route: 065
  28. LERCANIDIPINE [Suspect]
     Active Substance: LERCANIDIPINE
     Route: 065
  29. LERCANIDIPINE [Suspect]
     Active Substance: LERCANIDIPINE
     Route: 065
  30. LERCANIDIPINE [Suspect]
     Active Substance: LERCANIDIPINE
     Route: 065
  31. LERCANIDIPINE [Suspect]
     Active Substance: LERCANIDIPINE
     Route: 065
  32. LERCANIDIPINE [Suspect]
     Active Substance: LERCANIDIPINE
     Route: 065
  33. LERCANIDIPINE [Suspect]
     Active Substance: LERCANIDIPINE
     Route: 065
  34. LERCANIDIPINE [Suspect]
     Active Substance: LERCANIDIPINE
     Route: 065
  35. LERCANIDIPINE [Suspect]
     Active Substance: LERCANIDIPINE
     Route: 065
  36. LERCANIDIPINE [Suspect]
     Active Substance: LERCANIDIPINE
     Route: 065
  37. LERCANIDIPINE [Suspect]
     Active Substance: LERCANIDIPINE
     Route: 065
  38. LERCANIDIPINE [Suspect]
     Active Substance: LERCANIDIPINE
     Route: 065
  39. LERCANIDIPINE [Suspect]
     Active Substance: LERCANIDIPINE
     Route: 065
  40. LERCANIDIPINE [Suspect]
     Active Substance: LERCANIDIPINE
     Route: 065
  41. LERCANIDIPINE [Suspect]
     Active Substance: LERCANIDIPINE
     Route: 065
  42. LERCANIDIPINE [Suspect]
     Active Substance: LERCANIDIPINE
     Route: 065
  43. LERCANIDIPINE [Suspect]
     Active Substance: LERCANIDIPINE
     Route: 065
  44. LERCANIDIPINE [Suspect]
     Active Substance: LERCANIDIPINE
     Route: 065
  45. LERCANIDIPINE [Suspect]
     Active Substance: LERCANIDIPINE
     Route: 065
  46. LERCANIDIPINE [Suspect]
     Active Substance: LERCANIDIPINE
     Route: 065
  47. LERCANIDIPINE [Suspect]
     Active Substance: LERCANIDIPINE
     Route: 065
  48. LERCANIDIPINE [Suspect]
     Active Substance: LERCANIDIPINE
     Route: 065
  49. LERCANIDIPINE [Suspect]
     Active Substance: LERCANIDIPINE
     Route: 065
  50. LERCANIDIPINE [Suspect]
     Active Substance: LERCANIDIPINE
     Route: 065
  51. LERCANIDIPINE [Suspect]
     Active Substance: LERCANIDIPINE
  52. LERCANIDIPINE [Suspect]
     Active Substance: LERCANIDIPINE
  53. LERCANIDIPINE [Suspect]
     Active Substance: LERCANIDIPINE
  54. LERCANIDIPINE [Suspect]
     Active Substance: LERCANIDIPINE
  55. LERCANIDIPINE [Suspect]
     Active Substance: LERCANIDIPINE
  56. LERCANIDIPINE [Suspect]
     Active Substance: LERCANIDIPINE
  57. LERCANIDIPINE [Suspect]
     Active Substance: LERCANIDIPINE
  58. LERCANIDIPINE [Suspect]
     Active Substance: LERCANIDIPINE
  59. LERCANIDIPINE [Suspect]
     Active Substance: LERCANIDIPINE
  60. LERCANIDIPINE [Suspect]
     Active Substance: LERCANIDIPINE
  61. LERCANIDIPINE [Suspect]
     Active Substance: LERCANIDIPINE
  62. LERCANIDIPINE [Suspect]
     Active Substance: LERCANIDIPINE
  63. LERCANIDIPINE [Suspect]
     Active Substance: LERCANIDIPINE
  64. LERCANIDIPINE [Suspect]
     Active Substance: LERCANIDIPINE
  65. LERCANIDIPINE [Suspect]
     Active Substance: LERCANIDIPINE
  66. LERCANIDIPINE [Suspect]
     Active Substance: LERCANIDIPINE
  67. LERCANIDIPINE [Suspect]
     Active Substance: LERCANIDIPINE
  68. LERCANIDIPINE [Suspect]
     Active Substance: LERCANIDIPINE
  69. LERCANIDIPINE [Suspect]
     Active Substance: LERCANIDIPINE
  70. LERCANIDIPINE [Suspect]
     Active Substance: LERCANIDIPINE
  71. LERCANIDIPINE [Suspect]
     Active Substance: LERCANIDIPINE
  72. LERCANIDIPINE [Suspect]
     Active Substance: LERCANIDIPINE
  73. LERCANIDIPINE [Suspect]
     Active Substance: LERCANIDIPINE
  74. LERCANIDIPINE [Suspect]
     Active Substance: LERCANIDIPINE
  75. LERCANIDIPINE [Suspect]
     Active Substance: LERCANIDIPINE
  76. LERCANIDIPINE [Suspect]
     Active Substance: LERCANIDIPINE
  77. LERCANIDIPINE [Suspect]
     Active Substance: LERCANIDIPINE
  78. LERCANIDIPINE [Suspect]
     Active Substance: LERCANIDIPINE
  79. LERCANIDIPINE [Suspect]
     Active Substance: LERCANIDIPINE
  80. LERCANIDIPINE [Suspect]
     Active Substance: LERCANIDIPINE
  81. LERCANIDIPINE [Suspect]
     Active Substance: LERCANIDIPINE
  82. LERCANIDIPINE [Suspect]
     Active Substance: LERCANIDIPINE
  83. LERCANIDIPINE [Suspect]
     Active Substance: LERCANIDIPINE
  84. LERCANIDIPINE [Suspect]
     Active Substance: LERCANIDIPINE
  85. LERCANIDIPINE [Suspect]
     Active Substance: LERCANIDIPINE
  86. LERCANIDIPINE [Suspect]
     Active Substance: LERCANIDIPINE
  87. LERCANIDIPINE [Suspect]
     Active Substance: LERCANIDIPINE
  88. LERCANIDIPINE [Suspect]
     Active Substance: LERCANIDIPINE
  89. LERCANIDIPINE [Suspect]
     Active Substance: LERCANIDIPINE
  90. LERCANIDIPINE [Suspect]
     Active Substance: LERCANIDIPINE
  91. LERCANIDIPINE [Suspect]
     Active Substance: LERCANIDIPINE
  92. LERCANIDIPINE [Suspect]
     Active Substance: LERCANIDIPINE
  93. LERCANIDIPINE [Suspect]
     Active Substance: LERCANIDIPINE
  94. LERCANIDIPINE [Suspect]
     Active Substance: LERCANIDIPINE
  95. LERCANIDIPINE [Suspect]
     Active Substance: LERCANIDIPINE
  96. LERCANIDIPINE [Suspect]
     Active Substance: LERCANIDIPINE
  97. LERCANIDIPINE [Suspect]
     Active Substance: LERCANIDIPINE
  98. LERCANIDIPINE [Suspect]
     Active Substance: LERCANIDIPINE
  99. LERCANIDIPINE [Suspect]
     Active Substance: LERCANIDIPINE
  100. LERCANIDIPINE [Suspect]
     Active Substance: LERCANIDIPINE
  101. LERCANIDIPINE [Suspect]
     Active Substance: LERCANIDIPINE
  102. LERCANIDIPINE [Suspect]
     Active Substance: LERCANIDIPINE
  103. FLUOXETINE [Suspect]
     Active Substance: FLUOXETINE HYDROCHLORIDE
     Indication: Blood cholesterol increased
     Route: 047
  104. FLUOXETINE [Suspect]
     Active Substance: FLUOXETINE HYDROCHLORIDE
     Indication: Hypertension
     Route: 047
  105. FLUOXETINE [Suspect]
     Active Substance: FLUOXETINE HYDROCHLORIDE
     Indication: Hypercholesterolaemia
     Route: 061
  106. FLUOXETINE [Suspect]
     Active Substance: FLUOXETINE HYDROCHLORIDE
     Indication: Depression
     Route: 065
     Dates: start: 20231220
  107. FLUOXETINE [Suspect]
     Active Substance: FLUOXETINE HYDROCHLORIDE
     Route: 061
     Dates: start: 20231220
  108. FLUOXETINE [Suspect]
     Active Substance: FLUOXETINE HYDROCHLORIDE
     Route: 065
  109. FLUOXETINE [Suspect]
     Active Substance: FLUOXETINE HYDROCHLORIDE
     Route: 065
  110. FLUOXETINE [Suspect]
     Active Substance: FLUOXETINE HYDROCHLORIDE
     Route: 065
  111. FLUOXETINE [Suspect]
     Active Substance: FLUOXETINE HYDROCHLORIDE
     Route: 065
  112. FLUOXETINE [Suspect]
     Active Substance: FLUOXETINE HYDROCHLORIDE
     Route: 065
  113. FLUOXETINE [Suspect]
     Active Substance: FLUOXETINE HYDROCHLORIDE
     Route: 065
  114. FLUOXETINE [Suspect]
     Active Substance: FLUOXETINE HYDROCHLORIDE
     Route: 065
  115. FLUOXETINE [Suspect]
     Active Substance: FLUOXETINE HYDROCHLORIDE
     Route: 065
  116. FLUOXETINE [Suspect]
     Active Substance: FLUOXETINE HYDROCHLORIDE
     Route: 065
  117. FLUOXETINE [Suspect]
     Active Substance: FLUOXETINE HYDROCHLORIDE
     Route: 065
  118. FLUOXETINE [Suspect]
     Active Substance: FLUOXETINE HYDROCHLORIDE
     Route: 065
  119. FLUOXETINE [Suspect]
     Active Substance: FLUOXETINE HYDROCHLORIDE
     Route: 065
  120. FLUOXETINE [Suspect]
     Active Substance: FLUOXETINE HYDROCHLORIDE
     Route: 065
  121. FLUOXETINE [Suspect]
     Active Substance: FLUOXETINE HYDROCHLORIDE
     Route: 065
  122. FLUOXETINE [Suspect]
     Active Substance: FLUOXETINE HYDROCHLORIDE
     Route: 065
  123. FLUOXETINE [Suspect]
     Active Substance: FLUOXETINE HYDROCHLORIDE
     Route: 065
  124. FLUOXETINE [Suspect]
     Active Substance: FLUOXETINE HYDROCHLORIDE
     Route: 065
  125. FLUOXETINE [Suspect]
     Active Substance: FLUOXETINE HYDROCHLORIDE
     Route: 065
  126. FLUOXETINE [Suspect]
     Active Substance: FLUOXETINE HYDROCHLORIDE
     Route: 065
  127. FLUOXETINE [Suspect]
     Active Substance: FLUOXETINE HYDROCHLORIDE
     Route: 047
  128. FLUOXETINE [Suspect]
     Active Substance: FLUOXETINE HYDROCHLORIDE
     Route: 047
  129. FLUOXETINE [Suspect]
     Active Substance: FLUOXETINE HYDROCHLORIDE
     Route: 047
  130. FLUOXETINE [Suspect]
     Active Substance: FLUOXETINE HYDROCHLORIDE
     Route: 047
  131. FLUOXETINE [Suspect]
     Active Substance: FLUOXETINE HYDROCHLORIDE
     Route: 047
  132. FLUOXETINE [Suspect]
     Active Substance: FLUOXETINE HYDROCHLORIDE
     Route: 047
  133. FLUOXETINE [Suspect]
     Active Substance: FLUOXETINE HYDROCHLORIDE
     Route: 047
  134. FLUOXETINE [Suspect]
     Active Substance: FLUOXETINE HYDROCHLORIDE
     Route: 047
  135. FLUOXETINE [Suspect]
     Active Substance: FLUOXETINE HYDROCHLORIDE
     Route: 047
  136. FLUOXETINE [Suspect]
     Active Substance: FLUOXETINE HYDROCHLORIDE
     Route: 047
  137. FLUOXETINE [Suspect]
     Active Substance: FLUOXETINE HYDROCHLORIDE
     Route: 047
  138. FLUOXETINE [Suspect]
     Active Substance: FLUOXETINE HYDROCHLORIDE
     Route: 047
  139. FLUOXETINE [Suspect]
     Active Substance: FLUOXETINE HYDROCHLORIDE
     Route: 047
  140. FLUOXETINE [Suspect]
     Active Substance: FLUOXETINE HYDROCHLORIDE
     Route: 047
  141. FLUOXETINE [Suspect]
     Active Substance: FLUOXETINE HYDROCHLORIDE
     Route: 047
  142. FLUOXETINE [Suspect]
     Active Substance: FLUOXETINE HYDROCHLORIDE
     Route: 047
  143. FLUOXETINE [Suspect]
     Active Substance: FLUOXETINE HYDROCHLORIDE
     Route: 047
  144. FLUOXETINE [Suspect]
     Active Substance: FLUOXETINE HYDROCHLORIDE
     Route: 047
  145. FLUOXETINE [Suspect]
     Active Substance: FLUOXETINE HYDROCHLORIDE
     Route: 047
  146. FLUOXETINE [Suspect]
     Active Substance: FLUOXETINE HYDROCHLORIDE
     Route: 047
  147. FLUOXETINE [Suspect]
     Active Substance: FLUOXETINE HYDROCHLORIDE
     Route: 047
  148. FLUOXETINE [Suspect]
     Active Substance: FLUOXETINE HYDROCHLORIDE
     Route: 047
  149. FLUOXETINE [Suspect]
     Active Substance: FLUOXETINE HYDROCHLORIDE
     Route: 047
  150. FLUOXETINE [Suspect]
     Active Substance: FLUOXETINE HYDROCHLORIDE
     Route: 047
  151. FLUOXETINE [Suspect]
     Active Substance: FLUOXETINE HYDROCHLORIDE
     Route: 047
  152. FLUOXETINE [Suspect]
     Active Substance: FLUOXETINE HYDROCHLORIDE
     Route: 047
  153. FLUOXETINE [Suspect]
     Active Substance: FLUOXETINE HYDROCHLORIDE
     Route: 047
  154. FLUOXETINE [Suspect]
     Active Substance: FLUOXETINE HYDROCHLORIDE
     Route: 047
  155. FLUOXETINE [Suspect]
     Active Substance: FLUOXETINE HYDROCHLORIDE
     Route: 061
  156. FLUOXETINE [Suspect]
     Active Substance: FLUOXETINE HYDROCHLORIDE
  157. FLUOXETINE [Suspect]
     Active Substance: FLUOXETINE HYDROCHLORIDE
  158. FLUOXETINE [Suspect]
     Active Substance: FLUOXETINE HYDROCHLORIDE
  159. FLUOXETINE [Suspect]
     Active Substance: FLUOXETINE HYDROCHLORIDE
  160. FLUOXETINE [Suspect]
     Active Substance: FLUOXETINE HYDROCHLORIDE
  161. FLUOXETINE [Suspect]
     Active Substance: FLUOXETINE HYDROCHLORIDE
     Route: 047
  162. FLUOXETINE [Suspect]
     Active Substance: FLUOXETINE HYDROCHLORIDE
     Route: 061
  163. FLUOXETINE [Suspect]
     Active Substance: FLUOXETINE HYDROCHLORIDE
     Route: 047
  164. FLUOXETINE [Suspect]
     Active Substance: FLUOXETINE HYDROCHLORIDE
  165. FLUOXETINE [Suspect]
     Active Substance: FLUOXETINE HYDROCHLORIDE
  166. FLUOXETINE [Suspect]
     Active Substance: FLUOXETINE HYDROCHLORIDE
  167. FLUOXETINE [Suspect]
     Active Substance: FLUOXETINE HYDROCHLORIDE
  168. FLUOXETINE [Suspect]
     Active Substance: FLUOXETINE HYDROCHLORIDE
  169. FLUOXETINE [Suspect]
     Active Substance: FLUOXETINE HYDROCHLORIDE
  170. FLUOXETINE [Suspect]
     Active Substance: FLUOXETINE HYDROCHLORIDE
  171. FLUOXETINE [Suspect]
     Active Substance: FLUOXETINE HYDROCHLORIDE
  172. FLUOXETINE [Suspect]
     Active Substance: FLUOXETINE HYDROCHLORIDE
  173. FLUOXETINE [Suspect]
     Active Substance: FLUOXETINE HYDROCHLORIDE
     Route: 047
     Dates: start: 20231220
  174. FLUOXETINE [Suspect]
     Active Substance: FLUOXETINE HYDROCHLORIDE
     Route: 047
  175. FLUOXETINE [Suspect]
     Active Substance: FLUOXETINE HYDROCHLORIDE
     Dates: start: 20231220
  176. FLUOXETINE [Suspect]
     Active Substance: FLUOXETINE HYDROCHLORIDE
  177. FLUOXETINE [Suspect]
     Active Substance: FLUOXETINE HYDROCHLORIDE
  178. FLUOXETINE [Suspect]
     Active Substance: FLUOXETINE HYDROCHLORIDE
  179. FLUOXETINE [Suspect]
     Active Substance: FLUOXETINE HYDROCHLORIDE
  180. FLUOXETINE [Suspect]
     Active Substance: FLUOXETINE HYDROCHLORIDE
  181. FLUOXETINE [Suspect]
     Active Substance: FLUOXETINE HYDROCHLORIDE
  182. FLUOXETINE [Suspect]
     Active Substance: FLUOXETINE HYDROCHLORIDE
  183. FLUOXETINE [Suspect]
     Active Substance: FLUOXETINE HYDROCHLORIDE
  184. FLUOXETINE [Suspect]
     Active Substance: FLUOXETINE HYDROCHLORIDE
  185. FLUOXETINE [Suspect]
     Active Substance: FLUOXETINE HYDROCHLORIDE
  186. FLUOXETINE [Suspect]
     Active Substance: FLUOXETINE HYDROCHLORIDE
  187. FLUOXETINE [Suspect]
     Active Substance: FLUOXETINE HYDROCHLORIDE
  188. FLUOXETINE [Suspect]
     Active Substance: FLUOXETINE HYDROCHLORIDE
  189. FLUOXETINE [Suspect]
     Active Substance: FLUOXETINE HYDROCHLORIDE
  190. FLUOXETINE [Suspect]
     Active Substance: FLUOXETINE HYDROCHLORIDE
  191. FLUOXETINE [Suspect]
     Active Substance: FLUOXETINE HYDROCHLORIDE
  192. FLUOXETINE [Suspect]
     Active Substance: FLUOXETINE HYDROCHLORIDE
  193. FLUOXETINE [Suspect]
     Active Substance: FLUOXETINE HYDROCHLORIDE
  194. FLUOXETINE [Suspect]
     Active Substance: FLUOXETINE HYDROCHLORIDE
  195. FLUOXETINE [Suspect]
     Active Substance: FLUOXETINE HYDROCHLORIDE
  196. FLUOXETINE [Suspect]
     Active Substance: FLUOXETINE HYDROCHLORIDE
  197. FLUOXETINE [Suspect]
     Active Substance: FLUOXETINE HYDROCHLORIDE
  198. FLUOXETINE [Suspect]
     Active Substance: FLUOXETINE HYDROCHLORIDE
  199. FLUOXETINE [Suspect]
     Active Substance: FLUOXETINE HYDROCHLORIDE
     Route: 061
  200. FLUOXETINE [Suspect]
     Active Substance: FLUOXETINE HYDROCHLORIDE
     Dates: start: 20231220
  201. FLUOXETINE [Suspect]
     Active Substance: FLUOXETINE HYDROCHLORIDE
  202. FLUOXETINE [Suspect]
     Active Substance: FLUOXETINE HYDROCHLORIDE
  203. FLUOXETINE [Suspect]
     Active Substance: FLUOXETINE HYDROCHLORIDE
  204. FLUOXETINE [Suspect]
     Active Substance: FLUOXETINE HYDROCHLORIDE
  205. FLUOXETINE [Suspect]
     Active Substance: FLUOXETINE HYDROCHLORIDE
  206. FLUOXETINE [Suspect]
     Active Substance: FLUOXETINE HYDROCHLORIDE
  207. FLUOXETINE [Suspect]
     Active Substance: FLUOXETINE HYDROCHLORIDE
  208. FLUOXETINE [Suspect]
     Active Substance: FLUOXETINE HYDROCHLORIDE
  209. FLUOXETINE [Suspect]
     Active Substance: FLUOXETINE HYDROCHLORIDE
  210. FLUOXETINE [Suspect]
     Active Substance: FLUOXETINE HYDROCHLORIDE
  211. FLUOXETINE [Suspect]
     Active Substance: FLUOXETINE HYDROCHLORIDE
  212. FLUOXETINE [Suspect]
     Active Substance: FLUOXETINE HYDROCHLORIDE
  213. FLUOXETINE [Suspect]
     Active Substance: FLUOXETINE HYDROCHLORIDE
  214. FLUOXETINE [Suspect]
     Active Substance: FLUOXETINE HYDROCHLORIDE
  215. FLUOXETINE [Suspect]
     Active Substance: FLUOXETINE HYDROCHLORIDE
  216. FLUOXETINE [Suspect]
     Active Substance: FLUOXETINE HYDROCHLORIDE
  217. FLUOXETINE [Suspect]
     Active Substance: FLUOXETINE HYDROCHLORIDE
  218. FLUOXETINE [Suspect]
     Active Substance: FLUOXETINE HYDROCHLORIDE
  219. FLUOXETINE [Suspect]
     Active Substance: FLUOXETINE HYDROCHLORIDE
  220. FLUOXETINE [Suspect]
     Active Substance: FLUOXETINE HYDROCHLORIDE
  221. FLUOXETINE [Suspect]
     Active Substance: FLUOXETINE HYDROCHLORIDE
  222. FLUOXETINE [Suspect]
     Active Substance: FLUOXETINE HYDROCHLORIDE
  223. FLUOXETINE [Suspect]
     Active Substance: FLUOXETINE HYDROCHLORIDE
  224. FLUOXETINE [Suspect]
     Active Substance: FLUOXETINE HYDROCHLORIDE
  225. FLUOXETINE [Suspect]
     Active Substance: FLUOXETINE HYDROCHLORIDE
  226. FLUOXETINE [Suspect]
     Active Substance: FLUOXETINE HYDROCHLORIDE
  227. FLUOXETINE [Suspect]
     Active Substance: FLUOXETINE HYDROCHLORIDE
  228. FLUOXETINE [Suspect]
     Active Substance: FLUOXETINE HYDROCHLORIDE
     Route: 061
  229. FLUOXETINE [Suspect]
     Active Substance: FLUOXETINE HYDROCHLORIDE
  230. FLUOXETINE [Suspect]
     Active Substance: FLUOXETINE HYDROCHLORIDE
  231. FLUOXETINE [Suspect]
     Active Substance: FLUOXETINE HYDROCHLORIDE
  232. FLUOXETINE [Suspect]
     Active Substance: FLUOXETINE HYDROCHLORIDE
  233. FLUOXETINE [Suspect]
     Active Substance: FLUOXETINE HYDROCHLORIDE
  234. FLUOXETINE [Suspect]
     Active Substance: FLUOXETINE HYDROCHLORIDE
  235. FLUOXETINE [Suspect]
     Active Substance: FLUOXETINE HYDROCHLORIDE
  236. FLUOXETINE [Suspect]
     Active Substance: FLUOXETINE HYDROCHLORIDE
  237. FLUOXETINE [Suspect]
     Active Substance: FLUOXETINE HYDROCHLORIDE
  238. FLUOXETINE [Suspect]
     Active Substance: FLUOXETINE HYDROCHLORIDE
  239. FLUOXETINE [Suspect]
     Active Substance: FLUOXETINE HYDROCHLORIDE
  240. FLUOXETINE [Suspect]
     Active Substance: FLUOXETINE HYDROCHLORIDE
  241. FLUOXETINE [Suspect]
     Active Substance: FLUOXETINE HYDROCHLORIDE
  242. FLUOXETINE [Suspect]
     Active Substance: FLUOXETINE HYDROCHLORIDE
     Route: 047
  243. FLUOXETINE [Suspect]
     Active Substance: FLUOXETINE HYDROCHLORIDE
     Route: 047
  244. FLUOXETINE [Suspect]
     Active Substance: FLUOXETINE HYDROCHLORIDE
     Route: 047
  245. FLUOXETINE [Suspect]
     Active Substance: FLUOXETINE HYDROCHLORIDE
     Route: 047
  246. FLUOXETINE [Suspect]
     Active Substance: FLUOXETINE HYDROCHLORIDE
     Route: 047
  247. FLUOXETINE [Suspect]
     Active Substance: FLUOXETINE HYDROCHLORIDE
  248. FLUOXETINE [Suspect]
     Active Substance: FLUOXETINE HYDROCHLORIDE
     Route: 047
  249. FLUOXETINE [Suspect]
     Active Substance: FLUOXETINE HYDROCHLORIDE
  250. FLUOXETINE [Suspect]
     Active Substance: FLUOXETINE HYDROCHLORIDE
     Route: 047
  251. FLUOXETINE [Suspect]
     Active Substance: FLUOXETINE HYDROCHLORIDE
     Route: 047
  252. FLUOXETINE [Suspect]
     Active Substance: FLUOXETINE HYDROCHLORIDE
  253. FLUOXETINE [Suspect]
     Active Substance: FLUOXETINE HYDROCHLORIDE
     Route: 047
  254. FLUOXETINE [Suspect]
     Active Substance: FLUOXETINE HYDROCHLORIDE
  255. FLUOXETINE [Suspect]
     Active Substance: FLUOXETINE HYDROCHLORIDE
     Route: 047
  256. FLUOXETINE [Suspect]
     Active Substance: FLUOXETINE HYDROCHLORIDE
     Route: 047
  257. FLUOXETINE [Suspect]
     Active Substance: FLUOXETINE HYDROCHLORIDE
     Route: 047
  258. FLUOXETINE [Suspect]
     Active Substance: FLUOXETINE HYDROCHLORIDE
     Route: 047
  259. FLUOXETINE [Suspect]
     Active Substance: FLUOXETINE HYDROCHLORIDE
     Route: 047
  260. FLUOXETINE [Suspect]
     Active Substance: FLUOXETINE HYDROCHLORIDE
     Route: 047
  261. FLUOXETINE [Suspect]
     Active Substance: FLUOXETINE HYDROCHLORIDE
     Route: 047
  262. FLUOXETINE [Suspect]
     Active Substance: FLUOXETINE HYDROCHLORIDE
     Route: 047
  263. FLUOXETINE [Suspect]
     Active Substance: FLUOXETINE HYDROCHLORIDE
     Route: 047
  264. FLUOXETINE [Suspect]
     Active Substance: FLUOXETINE HYDROCHLORIDE
     Route: 047
  265. FLUOXETINE [Suspect]
     Active Substance: FLUOXETINE HYDROCHLORIDE
     Route: 047
  266. FLUOXETINE [Suspect]
     Active Substance: FLUOXETINE HYDROCHLORIDE
     Route: 047
  267. FLUOXETINE [Suspect]
     Active Substance: FLUOXETINE HYDROCHLORIDE
     Route: 047
  268. FLUOXETINE [Suspect]
     Active Substance: FLUOXETINE HYDROCHLORIDE
     Route: 047
  269. FLUOXETINE [Suspect]
     Active Substance: FLUOXETINE HYDROCHLORIDE
     Route: 047
  270. FLUOXETINE [Suspect]
     Active Substance: FLUOXETINE HYDROCHLORIDE
     Route: 047
  271. FLUOXETINE [Suspect]
     Active Substance: FLUOXETINE HYDROCHLORIDE
     Route: 047
  272. FLUOXETINE [Suspect]
     Active Substance: FLUOXETINE HYDROCHLORIDE
     Route: 047
  273. FLUOXETINE [Suspect]
     Active Substance: FLUOXETINE HYDROCHLORIDE
     Route: 047
  274. FLUOXETINE [Suspect]
     Active Substance: FLUOXETINE HYDROCHLORIDE
     Route: 047
  275. FLUOXETINE [Suspect]
     Active Substance: FLUOXETINE HYDROCHLORIDE
  276. FLUOXETINE [Suspect]
     Active Substance: FLUOXETINE HYDROCHLORIDE
     Route: 047
  277. FLUOXETINE [Suspect]
     Active Substance: FLUOXETINE HYDROCHLORIDE
     Route: 047
  278. FLUOXETINE [Suspect]
     Active Substance: FLUOXETINE HYDROCHLORIDE
     Route: 047
  279. FLUOXETINE [Suspect]
     Active Substance: FLUOXETINE HYDROCHLORIDE
     Route: 047
  280. FLUOXETINE [Suspect]
     Active Substance: FLUOXETINE HYDROCHLORIDE
     Route: 047
  281. FLUOXETINE [Suspect]
     Active Substance: FLUOXETINE HYDROCHLORIDE
     Route: 047
  282. FLUOXETINE [Suspect]
     Active Substance: FLUOXETINE HYDROCHLORIDE
     Route: 047
  283. FLUOXETINE [Suspect]
     Active Substance: FLUOXETINE HYDROCHLORIDE
     Route: 047
  284. FLUOXETINE [Suspect]
     Active Substance: FLUOXETINE HYDROCHLORIDE
     Route: 047
  285. FLUOXETINE [Suspect]
     Active Substance: FLUOXETINE HYDROCHLORIDE
     Route: 047
  286. FLUOXETINE [Suspect]
     Active Substance: FLUOXETINE HYDROCHLORIDE
     Route: 047
  287. FLUOXETINE [Suspect]
     Active Substance: FLUOXETINE HYDROCHLORIDE
     Route: 047
  288. FLUOXETINE [Suspect]
     Active Substance: FLUOXETINE HYDROCHLORIDE
     Route: 047
  289. FLUOXETINE [Suspect]
     Active Substance: FLUOXETINE HYDROCHLORIDE
     Route: 047
  290. FLUOXETINE [Suspect]
     Active Substance: FLUOXETINE HYDROCHLORIDE
     Route: 047
  291. FLUOXETINE [Suspect]
     Active Substance: FLUOXETINE HYDROCHLORIDE
     Route: 047
  292. FLUOXETINE [Suspect]
     Active Substance: FLUOXETINE HYDROCHLORIDE
     Route: 047
  293. FLUOXETINE [Suspect]
     Active Substance: FLUOXETINE HYDROCHLORIDE
     Route: 047
  294. FLUOXETINE [Suspect]
     Active Substance: FLUOXETINE HYDROCHLORIDE
     Route: 047
  295. FLUOXETINE [Suspect]
     Active Substance: FLUOXETINE HYDROCHLORIDE
     Route: 047
  296. FLUOXETINE [Suspect]
     Active Substance: FLUOXETINE HYDROCHLORIDE
     Route: 047
  297. FLUOXETINE [Suspect]
     Active Substance: FLUOXETINE HYDROCHLORIDE
     Route: 047
  298. FLUOXETINE [Suspect]
     Active Substance: FLUOXETINE HYDROCHLORIDE
     Route: 047
  299. FLUOXETINE [Suspect]
     Active Substance: FLUOXETINE HYDROCHLORIDE
  300. FLUOXETINE [Suspect]
     Active Substance: FLUOXETINE HYDROCHLORIDE
     Route: 047
  301. FLUOXETINE [Suspect]
     Active Substance: FLUOXETINE HYDROCHLORIDE
  302. FLUOXETINE [Suspect]
     Active Substance: FLUOXETINE HYDROCHLORIDE
     Route: 047
  303. FLUOXETINE [Suspect]
     Active Substance: FLUOXETINE HYDROCHLORIDE
     Route: 047
  304. FLUOXETINE [Suspect]
     Active Substance: FLUOXETINE HYDROCHLORIDE
     Route: 047
  305. FLUOXETINE [Suspect]
     Active Substance: FLUOXETINE HYDROCHLORIDE
     Route: 047
  306. FLUOXETINE [Suspect]
     Active Substance: FLUOXETINE HYDROCHLORIDE
     Route: 047
  307. FLUOXETINE [Suspect]
     Active Substance: FLUOXETINE HYDROCHLORIDE
     Route: 047
  308. FLUOXETINE [Suspect]
     Active Substance: FLUOXETINE HYDROCHLORIDE
     Route: 047
  309. FLUOXETINE [Suspect]
     Active Substance: FLUOXETINE HYDROCHLORIDE
     Route: 047
  310. FLUOXETINE [Suspect]
     Active Substance: FLUOXETINE HYDROCHLORIDE
     Route: 047
  311. FLUOXETINE [Suspect]
     Active Substance: FLUOXETINE HYDROCHLORIDE
     Route: 047
  312. FLUOXETINE [Suspect]
     Active Substance: FLUOXETINE HYDROCHLORIDE
     Route: 047
  313. FLUOXETINE [Suspect]
     Active Substance: FLUOXETINE HYDROCHLORIDE
     Route: 047
  314. FLUOXETINE [Suspect]
     Active Substance: FLUOXETINE HYDROCHLORIDE
     Route: 047
  315. FLUOXETINE [Suspect]
     Active Substance: FLUOXETINE HYDROCHLORIDE
     Route: 047
  316. FLUOXETINE [Suspect]
     Active Substance: FLUOXETINE HYDROCHLORIDE
     Route: 047
  317. FLUOXETINE [Suspect]
     Active Substance: FLUOXETINE HYDROCHLORIDE
     Route: 047
  318. FLUOXETINE [Suspect]
     Active Substance: FLUOXETINE HYDROCHLORIDE
     Route: 047
  319. FLUOXETINE [Suspect]
     Active Substance: FLUOXETINE HYDROCHLORIDE
     Route: 047
  320. FLUOXETINE [Suspect]
     Active Substance: FLUOXETINE HYDROCHLORIDE
     Route: 047
  321. FLUOXETINE [Suspect]
     Active Substance: FLUOXETINE HYDROCHLORIDE
     Route: 047
  322. FLUOXETINE [Suspect]
     Active Substance: FLUOXETINE HYDROCHLORIDE
  323. FLUOXETINE [Suspect]
     Active Substance: FLUOXETINE HYDROCHLORIDE
  324. FLUOXETINE [Suspect]
     Active Substance: FLUOXETINE HYDROCHLORIDE
  325. FLUOXETINE [Suspect]
     Active Substance: FLUOXETINE HYDROCHLORIDE
  326. FLUOXETINE [Suspect]
     Active Substance: FLUOXETINE HYDROCHLORIDE
     Route: 047
  327. FLUOXETINE [Suspect]
     Active Substance: FLUOXETINE HYDROCHLORIDE
     Route: 047
  328. FLUOXETINE [Suspect]
     Active Substance: FLUOXETINE HYDROCHLORIDE
     Route: 047
  329. FLUOXETINE [Suspect]
     Active Substance: FLUOXETINE HYDROCHLORIDE
  330. FLUOXETINE [Suspect]
     Active Substance: FLUOXETINE HYDROCHLORIDE
     Route: 047
  331. FLUOXETINE [Suspect]
     Active Substance: FLUOXETINE HYDROCHLORIDE
     Route: 047
  332. FLUOXETINE [Suspect]
     Active Substance: FLUOXETINE HYDROCHLORIDE
  333. FLUOXETINE [Suspect]
     Active Substance: FLUOXETINE HYDROCHLORIDE
  334. FLUOXETINE [Suspect]
     Active Substance: FLUOXETINE HYDROCHLORIDE
  335. FLUOXETINE [Suspect]
     Active Substance: FLUOXETINE HYDROCHLORIDE
  336. FLUOXETINE [Suspect]
     Active Substance: FLUOXETINE HYDROCHLORIDE
  337. FLUOXETINE [Suspect]
     Active Substance: FLUOXETINE HYDROCHLORIDE
  338. FLUOXETINE [Suspect]
     Active Substance: FLUOXETINE HYDROCHLORIDE
     Route: 047
  339. FLUOXETINE [Suspect]
     Active Substance: FLUOXETINE HYDROCHLORIDE
  340. FLUOXETINE [Suspect]
     Active Substance: FLUOXETINE HYDROCHLORIDE
  341. FLUOXETINE [Suspect]
     Active Substance: FLUOXETINE HYDROCHLORIDE
     Route: 047
  342. FLUOXETINE [Suspect]
     Active Substance: FLUOXETINE HYDROCHLORIDE
  343. FLUOXETINE [Suspect]
     Active Substance: FLUOXETINE HYDROCHLORIDE
     Route: 047
  344. FLUOXETINE [Suspect]
     Active Substance: FLUOXETINE HYDROCHLORIDE
     Route: 047
  345. FLUOXETINE [Suspect]
     Active Substance: FLUOXETINE HYDROCHLORIDE
  346. FLUOXETINE [Suspect]
     Active Substance: FLUOXETINE HYDROCHLORIDE
     Route: 047
  347. FLUOXETINE [Suspect]
     Active Substance: FLUOXETINE HYDROCHLORIDE
     Route: 047
  348. FLUOXETINE [Suspect]
     Active Substance: FLUOXETINE HYDROCHLORIDE
     Route: 047
  349. FLUOXETINE [Suspect]
     Active Substance: FLUOXETINE HYDROCHLORIDE
     Route: 047
  350. FLUOXETINE [Suspect]
     Active Substance: FLUOXETINE HYDROCHLORIDE
  351. FLUOXETINE [Suspect]
     Active Substance: FLUOXETINE HYDROCHLORIDE
  352. FLUOXETINE [Suspect]
     Active Substance: FLUOXETINE HYDROCHLORIDE
     Route: 047
  353. FLUOXETINE [Suspect]
     Active Substance: FLUOXETINE HYDROCHLORIDE
     Route: 047
  354. FLUOXETINE [Suspect]
     Active Substance: FLUOXETINE HYDROCHLORIDE
     Route: 047
  355. FLUOXETINE [Suspect]
     Active Substance: FLUOXETINE HYDROCHLORIDE
     Route: 047
  356. FLUOXETINE [Suspect]
     Active Substance: FLUOXETINE HYDROCHLORIDE
     Route: 047
  357. FLUOXETINE [Suspect]
     Active Substance: FLUOXETINE HYDROCHLORIDE
     Route: 047
  358. FLUOXETINE [Suspect]
     Active Substance: FLUOXETINE HYDROCHLORIDE
     Route: 047
  359. FLUOXETINE [Suspect]
     Active Substance: FLUOXETINE HYDROCHLORIDE
     Route: 047
  360. FLUOXETINE [Suspect]
     Active Substance: FLUOXETINE HYDROCHLORIDE
  361. FLUOXETINE [Suspect]
     Active Substance: FLUOXETINE HYDROCHLORIDE
     Route: 047
  362. FLUOXETINE [Suspect]
     Active Substance: FLUOXETINE HYDROCHLORIDE
     Route: 047
  363. FLUOXETINE [Suspect]
     Active Substance: FLUOXETINE HYDROCHLORIDE
     Route: 047
  364. FLUOXETINE [Suspect]
     Active Substance: FLUOXETINE HYDROCHLORIDE
     Route: 047
  365. FLUOXETINE [Suspect]
     Active Substance: FLUOXETINE HYDROCHLORIDE
     Route: 047
  366. FLUOXETINE [Suspect]
     Active Substance: FLUOXETINE HYDROCHLORIDE
     Route: 047
  367. FLUOXETINE [Suspect]
     Active Substance: FLUOXETINE HYDROCHLORIDE
     Route: 047
  368. FLUOXETINE [Suspect]
     Active Substance: FLUOXETINE HYDROCHLORIDE
  369. FLUOXETINE [Suspect]
     Active Substance: FLUOXETINE HYDROCHLORIDE
  370. FLUOXETINE [Suspect]
     Active Substance: FLUOXETINE HYDROCHLORIDE
     Route: 047
  371. FLUOXETINE [Suspect]
     Active Substance: FLUOXETINE HYDROCHLORIDE
  372. FLUOXETINE [Suspect]
     Active Substance: FLUOXETINE HYDROCHLORIDE
  373. FLUOXETINE [Suspect]
     Active Substance: FLUOXETINE HYDROCHLORIDE
     Route: 047
  374. FLUOXETINE [Suspect]
     Active Substance: FLUOXETINE HYDROCHLORIDE
     Route: 047
  375. FLUOXETINE [Suspect]
     Active Substance: FLUOXETINE HYDROCHLORIDE
     Route: 047
  376. FLUOXETINE [Suspect]
     Active Substance: FLUOXETINE HYDROCHLORIDE
     Route: 047
  377. FLUOXETINE [Suspect]
     Active Substance: FLUOXETINE HYDROCHLORIDE
     Route: 047
  378. FLUOXETINE [Suspect]
     Active Substance: FLUOXETINE HYDROCHLORIDE
     Route: 047
  379. FLUOXETINE [Suspect]
     Active Substance: FLUOXETINE HYDROCHLORIDE
     Route: 047
  380. FLUOXETINE [Suspect]
     Active Substance: FLUOXETINE HYDROCHLORIDE
     Route: 047
  381. FLUOXETINE [Suspect]
     Active Substance: FLUOXETINE HYDROCHLORIDE
     Route: 047
  382. FLUOXETINE [Suspect]
     Active Substance: FLUOXETINE HYDROCHLORIDE
     Route: 047
  383. FLUOXETINE [Suspect]
     Active Substance: FLUOXETINE HYDROCHLORIDE
     Route: 047
  384. FLUOXETINE [Suspect]
     Active Substance: FLUOXETINE HYDROCHLORIDE
     Route: 047
  385. FLUOXETINE [Suspect]
     Active Substance: FLUOXETINE HYDROCHLORIDE
     Route: 047
  386. FLUOXETINE [Suspect]
     Active Substance: FLUOXETINE HYDROCHLORIDE
     Route: 047
  387. FLUOXETINE [Suspect]
     Active Substance: FLUOXETINE HYDROCHLORIDE
     Route: 047
  388. FLUOXETINE [Suspect]
     Active Substance: FLUOXETINE HYDROCHLORIDE
     Route: 047
  389. FLUOXETINE [Suspect]
     Active Substance: FLUOXETINE HYDROCHLORIDE
     Route: 047
  390. FLUOXETINE [Suspect]
     Active Substance: FLUOXETINE HYDROCHLORIDE
     Route: 047
  391. FLUOXETINE [Suspect]
     Active Substance: FLUOXETINE HYDROCHLORIDE
     Route: 047
  392. FLUOXETINE [Suspect]
     Active Substance: FLUOXETINE HYDROCHLORIDE
  393. FLUOXETINE [Suspect]
     Active Substance: FLUOXETINE HYDROCHLORIDE
     Route: 047
  394. FLUOXETINE [Suspect]
     Active Substance: FLUOXETINE HYDROCHLORIDE
     Route: 047
  395. FLUOXETINE [Suspect]
     Active Substance: FLUOXETINE HYDROCHLORIDE
     Route: 047
  396. FLUOXETINE [Suspect]
     Active Substance: FLUOXETINE HYDROCHLORIDE
     Route: 047
  397. FLUOXETINE [Suspect]
     Active Substance: FLUOXETINE HYDROCHLORIDE
     Route: 047
  398. FLUOXETINE [Suspect]
     Active Substance: FLUOXETINE HYDROCHLORIDE
     Route: 047
  399. FLUOXETINE [Suspect]
     Active Substance: FLUOXETINE HYDROCHLORIDE
     Route: 047
  400. FLUOXETINE [Suspect]
     Active Substance: FLUOXETINE HYDROCHLORIDE
     Route: 047
  401. FLUOXETINE [Suspect]
     Active Substance: FLUOXETINE HYDROCHLORIDE
     Route: 047
  402. FLUOXETINE [Suspect]
     Active Substance: FLUOXETINE HYDROCHLORIDE
     Route: 047
  403. FLUOXETINE [Suspect]
     Active Substance: FLUOXETINE HYDROCHLORIDE
     Route: 047
  404. FLUOXETINE [Suspect]
     Active Substance: FLUOXETINE HYDROCHLORIDE
     Route: 047
  405. FLUOXETINE [Suspect]
     Active Substance: FLUOXETINE HYDROCHLORIDE
     Route: 047
  406. FLUOXETINE [Suspect]
     Active Substance: FLUOXETINE HYDROCHLORIDE
  407. FLUOXETINE [Suspect]
     Active Substance: FLUOXETINE HYDROCHLORIDE
  408. FLUOXETINE [Suspect]
     Active Substance: FLUOXETINE HYDROCHLORIDE
  409. FLUOXETINE [Suspect]
     Active Substance: FLUOXETINE HYDROCHLORIDE
  410. FLUOXETINE [Suspect]
     Active Substance: FLUOXETINE HYDROCHLORIDE
  411. FLUOXETINE [Suspect]
     Active Substance: FLUOXETINE HYDROCHLORIDE
  412. FLUOXETINE [Suspect]
     Active Substance: FLUOXETINE HYDROCHLORIDE
  413. FLUOXETINE [Suspect]
     Active Substance: FLUOXETINE HYDROCHLORIDE
  414. FLUOXETINE [Suspect]
     Active Substance: FLUOXETINE HYDROCHLORIDE
  415. FLUOXETINE [Suspect]
     Active Substance: FLUOXETINE HYDROCHLORIDE
  416. FLUOXETINE [Suspect]
     Active Substance: FLUOXETINE HYDROCHLORIDE
  417. FLUOXETINE [Suspect]
     Active Substance: FLUOXETINE HYDROCHLORIDE
  418. FLUOXETINE [Suspect]
     Active Substance: FLUOXETINE HYDROCHLORIDE
  419. FLUOXETINE [Suspect]
     Active Substance: FLUOXETINE HYDROCHLORIDE
  420. FLUOXETINE [Suspect]
     Active Substance: FLUOXETINE HYDROCHLORIDE
  421. FLUOXETINE [Suspect]
     Active Substance: FLUOXETINE HYDROCHLORIDE
  422. FLUOXETINE [Suspect]
     Active Substance: FLUOXETINE HYDROCHLORIDE
  423. FLUOXETINE [Suspect]
     Active Substance: FLUOXETINE HYDROCHLORIDE
  424. FLUOXETINE [Suspect]
     Active Substance: FLUOXETINE HYDROCHLORIDE
  425. FLUOXETINE [Suspect]
     Active Substance: FLUOXETINE HYDROCHLORIDE
  426. FLUOXETINE [Suspect]
     Active Substance: FLUOXETINE HYDROCHLORIDE
  427. FLUOXETINE [Suspect]
     Active Substance: FLUOXETINE HYDROCHLORIDE
  428. FLUOXETINE [Suspect]
     Active Substance: FLUOXETINE HYDROCHLORIDE
  429. FLUOXETINE [Suspect]
     Active Substance: FLUOXETINE HYDROCHLORIDE
  430. FLUOXETINE [Suspect]
     Active Substance: FLUOXETINE HYDROCHLORIDE
  431. FLUOXETINE [Suspect]
     Active Substance: FLUOXETINE HYDROCHLORIDE
     Route: 047
  432. FLUOXETINE [Suspect]
     Active Substance: FLUOXETINE HYDROCHLORIDE
  433. FLUOXETINE [Suspect]
     Active Substance: FLUOXETINE HYDROCHLORIDE
     Route: 047
  434. FLUOXETINE [Suspect]
     Active Substance: FLUOXETINE HYDROCHLORIDE
     Route: 047
  435. FLUOXETINE [Suspect]
     Active Substance: FLUOXETINE HYDROCHLORIDE
     Route: 047
  436. FLUOXETINE [Suspect]
     Active Substance: FLUOXETINE HYDROCHLORIDE
     Route: 047
  437. FLUOXETINE [Suspect]
     Active Substance: FLUOXETINE HYDROCHLORIDE
     Route: 047
  438. FLUOXETINE [Suspect]
     Active Substance: FLUOXETINE HYDROCHLORIDE
  439. FLUOXETINE [Suspect]
     Active Substance: FLUOXETINE HYDROCHLORIDE
     Route: 047
  440. FLUOXETINE [Suspect]
     Active Substance: FLUOXETINE HYDROCHLORIDE
     Route: 047
  441. FLUOXETINE [Suspect]
     Active Substance: FLUOXETINE HYDROCHLORIDE
     Route: 047
  442. FLUOXETINE [Suspect]
     Active Substance: FLUOXETINE HYDROCHLORIDE
     Route: 047
  443. FLUOXETINE [Suspect]
     Active Substance: FLUOXETINE HYDROCHLORIDE
     Route: 047
  444. FLUOXETINE [Suspect]
     Active Substance: FLUOXETINE HYDROCHLORIDE
     Route: 047
  445. FLUOXETINE [Suspect]
     Active Substance: FLUOXETINE HYDROCHLORIDE
     Route: 047
  446. FLUOXETINE [Suspect]
     Active Substance: FLUOXETINE HYDROCHLORIDE
     Route: 047
  447. FLUOXETINE [Suspect]
     Active Substance: FLUOXETINE HYDROCHLORIDE
     Route: 047
  448. FLUOXETINE [Suspect]
     Active Substance: FLUOXETINE HYDROCHLORIDE
     Route: 047
  449. FLUOXETINE [Suspect]
     Active Substance: FLUOXETINE HYDROCHLORIDE
  450. FLUOXETINE [Suspect]
     Active Substance: FLUOXETINE HYDROCHLORIDE
     Route: 047
  451. FLUOXETINE [Suspect]
     Active Substance: FLUOXETINE HYDROCHLORIDE
  452. FLUOXETINE [Suspect]
     Active Substance: FLUOXETINE HYDROCHLORIDE
  453. FLUOXETINE [Suspect]
     Active Substance: FLUOXETINE HYDROCHLORIDE
     Route: 047
  454. FLUOXETINE [Suspect]
     Active Substance: FLUOXETINE HYDROCHLORIDE
     Route: 047
  455. FLUOXETINE [Suspect]
     Active Substance: FLUOXETINE HYDROCHLORIDE
     Route: 047
  456. FLUOXETINE [Suspect]
     Active Substance: FLUOXETINE HYDROCHLORIDE
     Route: 047
  457. FLUOXETINE [Suspect]
     Active Substance: FLUOXETINE HYDROCHLORIDE
     Route: 061
  458. FLUOXETINE [Suspect]
     Active Substance: FLUOXETINE HYDROCHLORIDE
     Route: 061
  459. FLUOXETINE [Suspect]
     Active Substance: FLUOXETINE HYDROCHLORIDE
     Route: 047
  460. FLUOXETINE [Suspect]
     Active Substance: FLUOXETINE HYDROCHLORIDE
     Route: 047
  461. FLUOXETINE [Suspect]
     Active Substance: FLUOXETINE HYDROCHLORIDE
     Route: 047
  462. FLUOXETINE [Suspect]
     Active Substance: FLUOXETINE HYDROCHLORIDE
     Route: 061
  463. FLUOXETINE [Suspect]
     Active Substance: FLUOXETINE HYDROCHLORIDE
  464. FLUOXETINE [Suspect]
     Active Substance: FLUOXETINE HYDROCHLORIDE
  465. FLUOXETINE [Suspect]
     Active Substance: FLUOXETINE HYDROCHLORIDE
  466. FLUOXETINE [Suspect]
     Active Substance: FLUOXETINE HYDROCHLORIDE
     Route: 061
  467. FLUOXETINE [Suspect]
     Active Substance: FLUOXETINE HYDROCHLORIDE
  468. FLUOXETINE [Suspect]
     Active Substance: FLUOXETINE HYDROCHLORIDE
  469. FLUOXETINE [Suspect]
     Active Substance: FLUOXETINE HYDROCHLORIDE
     Route: 061
  470. FLUOXETINE [Suspect]
     Active Substance: FLUOXETINE HYDROCHLORIDE
  471. FLUOXETINE [Suspect]
     Active Substance: FLUOXETINE HYDROCHLORIDE
  472. FLUOXETINE [Suspect]
     Active Substance: FLUOXETINE HYDROCHLORIDE
  473. FLUOXETINE [Suspect]
     Active Substance: FLUOXETINE HYDROCHLORIDE
  474. FLUOXETINE [Suspect]
     Active Substance: FLUOXETINE HYDROCHLORIDE
  475. FLUOXETINE [Suspect]
     Active Substance: FLUOXETINE HYDROCHLORIDE
     Route: 047
  476. FLUOXETINE [Suspect]
     Active Substance: FLUOXETINE HYDROCHLORIDE
     Route: 061
  477. FLUOXETINE [Suspect]
     Active Substance: FLUOXETINE HYDROCHLORIDE
     Route: 047
  478. FLUOXETINE [Suspect]
     Active Substance: FLUOXETINE HYDROCHLORIDE
  479. FLUOXETINE [Suspect]
     Active Substance: FLUOXETINE HYDROCHLORIDE
  480. FLUOXETINE [Suspect]
     Active Substance: FLUOXETINE HYDROCHLORIDE
     Route: 061
  481. FLUOXETINE [Suspect]
     Active Substance: FLUOXETINE HYDROCHLORIDE
     Route: 047
  482. FLUOXETINE [Suspect]
     Active Substance: FLUOXETINE HYDROCHLORIDE
     Route: 047
  483. FLUOXETINE [Suspect]
     Active Substance: FLUOXETINE HYDROCHLORIDE
     Route: 061
  484. AMLODIPINE [Suspect]
     Active Substance: AMLODIPINE BESYLATE
     Indication: Hypertension
     Route: 048
  485. AMLODIPINE [Suspect]
     Active Substance: AMLODIPINE BESYLATE
     Indication: Blood cholesterol increased
     Route: 065
  486. AMLODIPINE [Suspect]
     Active Substance: AMLODIPINE BESYLATE
     Indication: Depression
     Route: 065
  487. AMLODIPINE [Suspect]
     Active Substance: AMLODIPINE BESYLATE
     Indication: Hypercholesterolaemia
     Route: 065
  488. AMLODIPINE [Suspect]
     Active Substance: AMLODIPINE BESYLATE
     Route: 065
  489. AMLODIPINE [Suspect]
     Active Substance: AMLODIPINE BESYLATE
     Route: 065
  490. AMLODIPINE [Suspect]
     Active Substance: AMLODIPINE BESYLATE
     Route: 065
  491. AMLODIPINE [Suspect]
     Active Substance: AMLODIPINE BESYLATE
     Route: 065
  492. AMLODIPINE [Suspect]
     Active Substance: AMLODIPINE BESYLATE
     Route: 065
  493. AMLODIPINE [Suspect]
     Active Substance: AMLODIPINE BESYLATE
     Route: 065
  494. AMLODIPINE [Suspect]
     Active Substance: AMLODIPINE BESYLATE
     Route: 065
  495. AMLODIPINE [Suspect]
     Active Substance: AMLODIPINE BESYLATE
     Route: 065
  496. AMLODIPINE [Suspect]
     Active Substance: AMLODIPINE BESYLATE
     Route: 065
  497. AMLODIPINE [Suspect]
     Active Substance: AMLODIPINE BESYLATE
     Route: 065
  498. AMLODIPINE [Suspect]
     Active Substance: AMLODIPINE BESYLATE
     Route: 065
  499. AMLODIPINE [Suspect]
     Active Substance: AMLODIPINE BESYLATE
     Route: 065
  500. AMLODIPINE [Suspect]
     Active Substance: AMLODIPINE BESYLATE
     Route: 065
  501. AMLODIPINE [Suspect]
     Active Substance: AMLODIPINE BESYLATE
     Route: 065
  502. AMLODIPINE [Suspect]
     Active Substance: AMLODIPINE BESYLATE
     Route: 065
  503. AMLODIPINE [Suspect]
     Active Substance: AMLODIPINE BESYLATE
     Route: 065
  504. AMLODIPINE [Suspect]
     Active Substance: AMLODIPINE BESYLATE
     Route: 065
  505. AMLODIPINE [Suspect]
     Active Substance: AMLODIPINE BESYLATE
     Route: 065
  506. AMLODIPINE [Suspect]
     Active Substance: AMLODIPINE BESYLATE
     Route: 065
  507. AMLODIPINE [Suspect]
     Active Substance: AMLODIPINE BESYLATE
     Route: 048
  508. AMLODIPINE [Suspect]
     Active Substance: AMLODIPINE BESYLATE
     Route: 048
  509. AMLODIPINE [Suspect]
     Active Substance: AMLODIPINE BESYLATE
     Route: 048
  510. AMLODIPINE [Suspect]
     Active Substance: AMLODIPINE BESYLATE
     Route: 048
  511. AMLODIPINE [Suspect]
     Active Substance: AMLODIPINE BESYLATE
     Route: 048
  512. AMLODIPINE [Suspect]
     Active Substance: AMLODIPINE BESYLATE
     Route: 048
  513. AMLODIPINE [Suspect]
     Active Substance: AMLODIPINE BESYLATE
     Route: 048
  514. AMLODIPINE [Suspect]
     Active Substance: AMLODIPINE BESYLATE
     Route: 048
  515. AMLODIPINE [Suspect]
     Active Substance: AMLODIPINE BESYLATE
     Route: 048
  516. AMLODIPINE [Suspect]
     Active Substance: AMLODIPINE BESYLATE
     Route: 048
  517. AMLODIPINE [Suspect]
     Active Substance: AMLODIPINE BESYLATE
     Route: 048
  518. AMLODIPINE [Suspect]
     Active Substance: AMLODIPINE BESYLATE
     Route: 048
  519. AMLODIPINE [Suspect]
     Active Substance: AMLODIPINE BESYLATE
     Route: 048
  520. AMLODIPINE [Suspect]
     Active Substance: AMLODIPINE BESYLATE
     Route: 048
  521. AMLODIPINE [Suspect]
     Active Substance: AMLODIPINE BESYLATE
     Route: 048
  522. AMLODIPINE [Suspect]
     Active Substance: AMLODIPINE BESYLATE
     Route: 048
  523. AMLODIPINE [Suspect]
     Active Substance: AMLODIPINE BESYLATE
     Route: 048
  524. AMLODIPINE [Suspect]
     Active Substance: AMLODIPINE BESYLATE
     Route: 048
  525. AMLODIPINE [Suspect]
     Active Substance: AMLODIPINE BESYLATE
     Route: 048
  526. AMLODIPINE [Suspect]
     Active Substance: AMLODIPINE BESYLATE
     Route: 048
  527. AMLODIPINE [Suspect]
     Active Substance: AMLODIPINE BESYLATE
     Route: 048
  528. AMLODIPINE [Suspect]
     Active Substance: AMLODIPINE BESYLATE
     Route: 048
  529. AMLODIPINE [Suspect]
     Active Substance: AMLODIPINE BESYLATE
     Route: 048
  530. AMLODIPINE [Suspect]
     Active Substance: AMLODIPINE BESYLATE
     Route: 048
  531. AMLODIPINE [Suspect]
     Active Substance: AMLODIPINE BESYLATE
     Route: 048
  532. AMLODIPINE [Suspect]
     Active Substance: AMLODIPINE BESYLATE
     Route: 048
  533. AMLODIPINE [Suspect]
     Active Substance: AMLODIPINE BESYLATE
     Route: 048
  534. AMLODIPINE [Suspect]
     Active Substance: AMLODIPINE BESYLATE
  535. AMLODIPINE [Suspect]
     Active Substance: AMLODIPINE BESYLATE
     Route: 048
  536. AMLODIPINE [Suspect]
     Active Substance: AMLODIPINE BESYLATE
     Route: 048
  537. AMLODIPINE [Suspect]
     Active Substance: AMLODIPINE BESYLATE
  538. AMLODIPINE [Suspect]
     Active Substance: AMLODIPINE BESYLATE
  539. AMLODIPINE [Suspect]
     Active Substance: AMLODIPINE BESYLATE
  540. AMLODIPINE [Suspect]
     Active Substance: AMLODIPINE BESYLATE
     Route: 048
  541. AMLODIPINE [Suspect]
     Active Substance: AMLODIPINE BESYLATE
     Route: 048
  542. AMLODIPINE [Suspect]
     Active Substance: AMLODIPINE BESYLATE
     Route: 048
  543. AMLODIPINE [Suspect]
     Active Substance: AMLODIPINE BESYLATE
     Route: 048
  544. AMLODIPINE [Suspect]
     Active Substance: AMLODIPINE BESYLATE
     Route: 048
  545. AMLODIPINE [Suspect]
     Active Substance: AMLODIPINE BESYLATE
  546. AMLODIPINE [Suspect]
     Active Substance: AMLODIPINE BESYLATE
     Route: 048
  547. AMLODIPINE [Suspect]
     Active Substance: AMLODIPINE BESYLATE
     Route: 048
  548. AMLODIPINE [Suspect]
     Active Substance: AMLODIPINE BESYLATE
  549. AMLODIPINE [Suspect]
     Active Substance: AMLODIPINE BESYLATE
  550. AMLODIPINE [Suspect]
     Active Substance: AMLODIPINE BESYLATE
     Route: 048
  551. AMLODIPINE [Suspect]
     Active Substance: AMLODIPINE BESYLATE
     Route: 048
  552. AMLODIPINE [Suspect]
     Active Substance: AMLODIPINE BESYLATE
     Route: 048
  553. AMLODIPINE [Suspect]
     Active Substance: AMLODIPINE BESYLATE
  554. AMLODIPINE [Suspect]
     Active Substance: AMLODIPINE BESYLATE
  555. AMLODIPINE [Suspect]
     Active Substance: AMLODIPINE BESYLATE
  556. AMLODIPINE [Suspect]
     Active Substance: AMLODIPINE BESYLATE
  557. AMLODIPINE [Suspect]
     Active Substance: AMLODIPINE BESYLATE
  558. AMLODIPINE [Suspect]
     Active Substance: AMLODIPINE BESYLATE
     Route: 048
  559. AMLODIPINE [Suspect]
     Active Substance: AMLODIPINE BESYLATE
     Route: 048
  560. AMLODIPINE [Suspect]
     Active Substance: AMLODIPINE BESYLATE
  561. AMLODIPINE [Suspect]
     Active Substance: AMLODIPINE BESYLATE
     Route: 048
  562. AMLODIPINE [Suspect]
     Active Substance: AMLODIPINE BESYLATE
     Route: 048
  563. AMLODIPINE [Suspect]
     Active Substance: AMLODIPINE BESYLATE
  564. AMLODIPINE [Suspect]
     Active Substance: AMLODIPINE BESYLATE
  565. AMLODIPINE [Suspect]
     Active Substance: AMLODIPINE BESYLATE
     Route: 048
  566. AMLODIPINE [Suspect]
     Active Substance: AMLODIPINE BESYLATE
  567. AMLODIPINE [Suspect]
     Active Substance: AMLODIPINE BESYLATE
     Route: 048
  568. AMLODIPINE [Suspect]
     Active Substance: AMLODIPINE BESYLATE
  569. AMLODIPINE [Suspect]
     Active Substance: AMLODIPINE BESYLATE
  570. AMLODIPINE [Suspect]
     Active Substance: AMLODIPINE BESYLATE
  571. AMLODIPINE [Suspect]
     Active Substance: AMLODIPINE BESYLATE
  572. AMLODIPINE [Suspect]
     Active Substance: AMLODIPINE BESYLATE
  573. AMLODIPINE [Suspect]
     Active Substance: AMLODIPINE BESYLATE
  574. AMLODIPINE [Suspect]
     Active Substance: AMLODIPINE BESYLATE
  575. AMLODIPINE [Suspect]
     Active Substance: AMLODIPINE BESYLATE
  576. AMLODIPINE [Suspect]
     Active Substance: AMLODIPINE BESYLATE
  577. AMLODIPINE [Suspect]
     Active Substance: AMLODIPINE BESYLATE
  578. AMLODIPINE [Suspect]
     Active Substance: AMLODIPINE BESYLATE
  579. AMLODIPINE [Suspect]
     Active Substance: AMLODIPINE BESYLATE
  580. AMLODIPINE [Suspect]
     Active Substance: AMLODIPINE BESYLATE
  581. AMLODIPINE [Suspect]
     Active Substance: AMLODIPINE BESYLATE
  582. AMLODIPINE [Suspect]
     Active Substance: AMLODIPINE BESYLATE
  583. AMLODIPINE [Suspect]
     Active Substance: AMLODIPINE BESYLATE
  584. AMLODIPINE [Suspect]
     Active Substance: AMLODIPINE BESYLATE
  585. AMLODIPINE [Suspect]
     Active Substance: AMLODIPINE BESYLATE
  586. AMLODIPINE [Suspect]
     Active Substance: AMLODIPINE BESYLATE
  587. AMLODIPINE [Suspect]
     Active Substance: AMLODIPINE BESYLATE
  588. AMLODIPINE [Suspect]
     Active Substance: AMLODIPINE BESYLATE
  589. AMLODIPINE [Suspect]
     Active Substance: AMLODIPINE BESYLATE
  590. AMLODIPINE [Suspect]
     Active Substance: AMLODIPINE BESYLATE
  591. AMLODIPINE [Suspect]
     Active Substance: AMLODIPINE BESYLATE
  592. AMLODIPINE [Suspect]
     Active Substance: AMLODIPINE BESYLATE
  593. AMLODIPINE [Suspect]
     Active Substance: AMLODIPINE BESYLATE
  594. AMLODIPINE [Suspect]
     Active Substance: AMLODIPINE BESYLATE
  595. AMLODIPINE [Suspect]
     Active Substance: AMLODIPINE BESYLATE
  596. AMLODIPINE [Suspect]
     Active Substance: AMLODIPINE BESYLATE
  597. AMLODIPINE [Suspect]
     Active Substance: AMLODIPINE BESYLATE
  598. AMLODIPINE [Suspect]
     Active Substance: AMLODIPINE BESYLATE
  599. AMLODIPINE [Suspect]
     Active Substance: AMLODIPINE BESYLATE
  600. AMLODIPINE [Suspect]
     Active Substance: AMLODIPINE BESYLATE
  601. AMLODIPINE [Suspect]
     Active Substance: AMLODIPINE BESYLATE
  602. AMLODIPINE [Suspect]
     Active Substance: AMLODIPINE BESYLATE
  603. AMLODIPINE [Suspect]
     Active Substance: AMLODIPINE BESYLATE
  604. AMLODIPINE [Suspect]
     Active Substance: AMLODIPINE BESYLATE
  605. AMLODIPINE [Suspect]
     Active Substance: AMLODIPINE BESYLATE
  606. AMLODIPINE [Suspect]
     Active Substance: AMLODIPINE BESYLATE
  607. AMLODIPINE [Suspect]
     Active Substance: AMLODIPINE BESYLATE
  608. AMLODIPINE [Suspect]
     Active Substance: AMLODIPINE BESYLATE
  609. AMLODIPINE [Suspect]
     Active Substance: AMLODIPINE BESYLATE
  610. AMLODIPINE [Suspect]
     Active Substance: AMLODIPINE BESYLATE
  611. AMLODIPINE [Suspect]
     Active Substance: AMLODIPINE BESYLATE
     Route: 048
  612. AMLODIPINE [Suspect]
     Active Substance: AMLODIPINE BESYLATE
  613. AMLODIPINE [Suspect]
     Active Substance: AMLODIPINE BESYLATE
     Route: 048
  614. AMLODIPINE [Suspect]
     Active Substance: AMLODIPINE BESYLATE
  615. AMLODIPINE [Suspect]
     Active Substance: AMLODIPINE BESYLATE
     Route: 048
  616. SIMVASTATIN [Suspect]
     Active Substance: SIMVASTATIN
     Indication: Hypertension
     Route: 048
  617. SIMVASTATIN [Suspect]
     Active Substance: SIMVASTATIN
     Indication: Blood cholesterol increased
     Route: 048
  618. SIMVASTATIN [Suspect]
     Active Substance: SIMVASTATIN
     Indication: Depression
     Route: 048
  619. SIMVASTATIN [Suspect]
     Active Substance: SIMVASTATIN
     Indication: Hypercholesterolaemia
     Route: 048
  620. SIMVASTATIN [Suspect]
     Active Substance: SIMVASTATIN
     Route: 048
  621. SIMVASTATIN [Suspect]
     Active Substance: SIMVASTATIN
     Route: 048
  622. SIMVASTATIN [Suspect]
     Active Substance: SIMVASTATIN
     Route: 048
  623. SIMVASTATIN [Suspect]
     Active Substance: SIMVASTATIN
     Route: 048
  624. SIMVASTATIN [Suspect]
     Active Substance: SIMVASTATIN
     Route: 048
  625. SIMVASTATIN [Suspect]
     Active Substance: SIMVASTATIN
     Route: 048
  626. SIMVASTATIN [Suspect]
     Active Substance: SIMVASTATIN
     Route: 048
  627. SIMVASTATIN [Suspect]
     Active Substance: SIMVASTATIN
     Route: 048
  628. SIMVASTATIN [Suspect]
     Active Substance: SIMVASTATIN
     Route: 048
  629. SIMVASTATIN [Suspect]
     Active Substance: SIMVASTATIN
     Route: 048
  630. SIMVASTATIN [Suspect]
     Active Substance: SIMVASTATIN
     Route: 048
  631. SIMVASTATIN [Suspect]
     Active Substance: SIMVASTATIN
     Route: 048
  632. SIMVASTATIN [Suspect]
     Active Substance: SIMVASTATIN
     Route: 048
  633. SIMVASTATIN [Suspect]
     Active Substance: SIMVASTATIN
     Route: 048
  634. SIMVASTATIN [Suspect]
     Active Substance: SIMVASTATIN
     Route: 048
  635. SIMVASTATIN [Suspect]
     Active Substance: SIMVASTATIN
     Route: 048
  636. SIMVASTATIN [Suspect]
     Active Substance: SIMVASTATIN
     Route: 048
  637. SIMVASTATIN [Suspect]
     Active Substance: SIMVASTATIN
     Route: 048
  638. SIMVASTATIN [Suspect]
     Active Substance: SIMVASTATIN
     Route: 048
  639. SIMVASTATIN [Suspect]
     Active Substance: SIMVASTATIN
     Route: 048
  640. SIMVASTATIN [Suspect]
     Active Substance: SIMVASTATIN
     Route: 048
  641. SIMVASTATIN [Suspect]
     Active Substance: SIMVASTATIN
     Route: 048
  642. SIMVASTATIN [Suspect]
     Active Substance: SIMVASTATIN
     Route: 048
  643. SIMVASTATIN [Suspect]
     Active Substance: SIMVASTATIN
     Route: 048
  644. SIMVASTATIN [Suspect]
     Active Substance: SIMVASTATIN
     Route: 048
  645. SIMVASTATIN [Suspect]
     Active Substance: SIMVASTATIN
     Route: 048
  646. SIMVASTATIN [Suspect]
     Active Substance: SIMVASTATIN
     Route: 048
  647. SIMVASTATIN [Suspect]
     Active Substance: SIMVASTATIN
     Route: 048
  648. SIMVASTATIN [Suspect]
     Active Substance: SIMVASTATIN
     Route: 048
  649. SIMVASTATIN [Suspect]
     Active Substance: SIMVASTATIN
     Route: 048
  650. SIMVASTATIN [Suspect]
     Active Substance: SIMVASTATIN
     Route: 048
  651. SIMVASTATIN [Suspect]
     Active Substance: SIMVASTATIN
     Route: 048
  652. SIMVASTATIN [Suspect]
     Active Substance: SIMVASTATIN
     Route: 048
  653. SIMVASTATIN [Suspect]
     Active Substance: SIMVASTATIN
     Route: 048
  654. SIMVASTATIN [Suspect]
     Active Substance: SIMVASTATIN
     Route: 048
  655. SIMVASTATIN [Suspect]
     Active Substance: SIMVASTATIN
     Route: 048
  656. SIMVASTATIN [Suspect]
     Active Substance: SIMVASTATIN
     Route: 048
  657. SIMVASTATIN [Suspect]
     Active Substance: SIMVASTATIN
     Route: 048
  658. SIMVASTATIN [Suspect]
     Active Substance: SIMVASTATIN
     Route: 048
  659. SIMVASTATIN [Suspect]
     Active Substance: SIMVASTATIN
     Route: 048
  660. SIMVASTATIN [Suspect]
     Active Substance: SIMVASTATIN
     Route: 048
  661. SIMVASTATIN [Suspect]
     Active Substance: SIMVASTATIN
     Route: 048
  662. SIMVASTATIN [Suspect]
     Active Substance: SIMVASTATIN
     Route: 048
  663. SIMVASTATIN [Suspect]
     Active Substance: SIMVASTATIN
     Route: 048
  664. SIMVASTATIN [Suspect]
     Active Substance: SIMVASTATIN
     Route: 048
  665. SIMVASTATIN [Suspect]
     Active Substance: SIMVASTATIN
     Route: 048
  666. HYRIMOZ [Suspect]
     Active Substance: ADALIMUMAB-ADAZ
     Indication: Psoriasis
     Route: 058
     Dates: start: 20231004, end: 20231025
  667. HYRIMOZ [Suspect]
     Active Substance: ADALIMUMAB-ADAZ
     Route: 058
     Dates: start: 20231004, end: 20231025
  668. HYRIMOZ [Suspect]
     Active Substance: ADALIMUMAB-ADAZ
     Route: 058
     Dates: start: 20231004
  669. HYRIMOZ [Suspect]
     Active Substance: ADALIMUMAB-ADAZ
     Route: 058
     Dates: start: 20231004, end: 20231025
  670. HYRIMOZ [Suspect]
     Active Substance: ADALIMUMAB-ADAZ
     Route: 058
     Dates: end: 20231025
  671. HYRIMOZ [Suspect]
     Active Substance: ADALIMUMAB-ADAZ
     Route: 058
     Dates: start: 20231004
  672. HYRIMOZ [Suspect]
     Active Substance: ADALIMUMAB-ADAZ
     Route: 058
     Dates: start: 20231004, end: 20231025
  673. HYRIMOZ [Suspect]
     Active Substance: ADALIMUMAB-ADAZ
     Route: 058
     Dates: start: 20231004, end: 20231025
  674. HYRIMOZ [Suspect]
     Active Substance: ADALIMUMAB-ADAZ
     Route: 058
     Dates: start: 20231004, end: 20231025
  675. HYRIMOZ [Suspect]
     Active Substance: ADALIMUMAB-ADAZ
     Route: 058
     Dates: start: 20231004, end: 20231025
  676. HYRIMOZ [Suspect]
     Active Substance: ADALIMUMAB-ADAZ
     Route: 058
     Dates: start: 20231004
  677. HYRIMOZ [Suspect]
     Active Substance: ADALIMUMAB-ADAZ
     Route: 058
     Dates: start: 20231004, end: 20231025
  678. HYRIMOZ [Suspect]
     Active Substance: ADALIMUMAB-ADAZ
     Route: 058
     Dates: start: 20231004, end: 20231025
  679. HYRIMOZ [Suspect]
     Active Substance: ADALIMUMAB-ADAZ
     Route: 058
     Dates: start: 20231004, end: 20231025
  680. HYRIMOZ [Suspect]
     Active Substance: ADALIMUMAB-ADAZ
     Route: 058
     Dates: start: 20231004, end: 20231025
  681. HYRIMOZ [Suspect]
     Active Substance: ADALIMUMAB-ADAZ
     Route: 058
     Dates: end: 20231025
  682. HYRIMOZ [Suspect]
     Active Substance: ADALIMUMAB-ADAZ
     Route: 065
     Dates: end: 20231025
  683. HYRIMOZ [Suspect]
     Active Substance: ADALIMUMAB-ADAZ
     Route: 065
  684. LERCANIDIPINE HYDROCHLORIDE [Suspect]
     Active Substance: LERCANIDIPINE HYDROCHLORIDE
     Indication: Hypertension
     Route: 065
  685. LERCANIDIPINE HYDROCHLORIDE [Suspect]
     Active Substance: LERCANIDIPINE HYDROCHLORIDE
     Indication: Depression
     Route: 065
  686. LERCANIDIPINE HYDROCHLORIDE [Suspect]
     Active Substance: LERCANIDIPINE HYDROCHLORIDE
     Indication: Blood cholesterol increased
     Route: 065
  687. LERCANIDIPINE HYDROCHLORIDE [Suspect]
     Active Substance: LERCANIDIPINE HYDROCHLORIDE
     Indication: Hypercholesterolaemia
     Route: 065
  688. LERCANIDIPINE HYDROCHLORIDE [Suspect]
     Active Substance: LERCANIDIPINE HYDROCHLORIDE
     Indication: Blood cholesterol increased
     Route: 065
  689. LERCANIDIPINE HYDROCHLORIDE [Suspect]
     Active Substance: LERCANIDIPINE HYDROCHLORIDE
     Route: 065
  690. LERCANIDIPINE HYDROCHLORIDE [Suspect]
     Active Substance: LERCANIDIPINE HYDROCHLORIDE
     Route: 065
  691. LERCANIDIPINE HYDROCHLORIDE [Suspect]
     Active Substance: LERCANIDIPINE HYDROCHLORIDE
     Route: 065
  692. LERCANIDIPINE HYDROCHLORIDE [Suspect]
     Active Substance: LERCANIDIPINE HYDROCHLORIDE
     Route: 065
  693. LERCANIDIPINE HYDROCHLORIDE [Suspect]
     Active Substance: LERCANIDIPINE HYDROCHLORIDE
     Route: 065
  694. LERCANIDIPINE HYDROCHLORIDE [Suspect]
     Active Substance: LERCANIDIPINE HYDROCHLORIDE
     Route: 065
  695. LERCANIDIPINE HYDROCHLORIDE [Suspect]
     Active Substance: LERCANIDIPINE HYDROCHLORIDE
     Route: 065
  696. LERCANIDIPINE HYDROCHLORIDE [Suspect]
     Active Substance: LERCANIDIPINE HYDROCHLORIDE
     Route: 065
  697. LERCANIDIPINE HYDROCHLORIDE [Suspect]
     Active Substance: LERCANIDIPINE HYDROCHLORIDE
     Route: 065
  698. LERCANIDIPINE HYDROCHLORIDE [Suspect]
     Active Substance: LERCANIDIPINE HYDROCHLORIDE
     Route: 065
  699. LERCANIDIPINE HYDROCHLORIDE [Suspect]
     Active Substance: LERCANIDIPINE HYDROCHLORIDE
     Route: 065
  700. LERCANIDIPINE HYDROCHLORIDE [Suspect]
     Active Substance: LERCANIDIPINE HYDROCHLORIDE
     Route: 065
  701. LERCANIDIPINE HYDROCHLORIDE [Suspect]
     Active Substance: LERCANIDIPINE HYDROCHLORIDE
     Route: 065
  702. LERCANIDIPINE HYDROCHLORIDE [Suspect]
     Active Substance: LERCANIDIPINE HYDROCHLORIDE
     Route: 065
  703. LERCANIDIPINE HYDROCHLORIDE [Suspect]
     Active Substance: LERCANIDIPINE HYDROCHLORIDE
     Route: 065
  704. LERCANIDIPINE HYDROCHLORIDE [Suspect]
     Active Substance: LERCANIDIPINE HYDROCHLORIDE
     Route: 065
  705. LERCANIDIPINE HYDROCHLORIDE [Suspect]
     Active Substance: LERCANIDIPINE HYDROCHLORIDE
     Route: 065
  706. LERCANIDIPINE HYDROCHLORIDE [Suspect]
     Active Substance: LERCANIDIPINE HYDROCHLORIDE
     Route: 065
  707. LERCANIDIPINE HYDROCHLORIDE [Suspect]
     Active Substance: LERCANIDIPINE HYDROCHLORIDE
     Route: 065
  708. LERCANIDIPINE HYDROCHLORIDE [Suspect]
     Active Substance: LERCANIDIPINE HYDROCHLORIDE
     Route: 065
  709. LERCANIDIPINE HYDROCHLORIDE [Suspect]
     Active Substance: LERCANIDIPINE HYDROCHLORIDE
     Route: 065
  710. LERCANIDIPINE HYDROCHLORIDE [Suspect]
     Active Substance: LERCANIDIPINE HYDROCHLORIDE
     Route: 065
  711. LERCANIDIPINE HYDROCHLORIDE [Suspect]
     Active Substance: LERCANIDIPINE HYDROCHLORIDE
     Route: 065
  712. LERCANIDIPINE HYDROCHLORIDE [Suspect]
     Active Substance: LERCANIDIPINE HYDROCHLORIDE
     Route: 065
  713. LERCANIDIPINE HYDROCHLORIDE [Suspect]
     Active Substance: LERCANIDIPINE HYDROCHLORIDE
     Route: 065
  714. LERCANIDIPINE HYDROCHLORIDE [Suspect]
     Active Substance: LERCANIDIPINE HYDROCHLORIDE
     Route: 065
  715. LERCANIDIPINE HYDROCHLORIDE [Suspect]
     Active Substance: LERCANIDIPINE HYDROCHLORIDE
     Route: 065
  716. LERCANIDIPINE HYDROCHLORIDE [Suspect]
     Active Substance: LERCANIDIPINE HYDROCHLORIDE
     Route: 065
  717. LERCANIDIPINE HYDROCHLORIDE [Suspect]
     Active Substance: LERCANIDIPINE HYDROCHLORIDE
     Route: 065
  718. LERCANIDIPINE HYDROCHLORIDE [Suspect]
     Active Substance: LERCANIDIPINE HYDROCHLORIDE
     Route: 065
  719. LERCANIDIPINE HYDROCHLORIDE [Suspect]
     Active Substance: LERCANIDIPINE HYDROCHLORIDE
     Route: 065
  720. LERCANIDIPINE HYDROCHLORIDE [Suspect]
     Active Substance: LERCANIDIPINE HYDROCHLORIDE
     Route: 065
  721. LERCANIDIPINE HYDROCHLORIDE [Suspect]
     Active Substance: LERCANIDIPINE HYDROCHLORIDE
     Route: 065
  722. LERCANIDIPINE HYDROCHLORIDE [Suspect]
     Active Substance: LERCANIDIPINE HYDROCHLORIDE
     Route: 065
  723. LERCANIDIPINE HYDROCHLORIDE [Suspect]
     Active Substance: LERCANIDIPINE HYDROCHLORIDE
     Route: 065
  724. LERCANIDIPINE HYDROCHLORIDE [Suspect]
     Active Substance: LERCANIDIPINE HYDROCHLORIDE
     Route: 065
  725. LERCANIDIPINE HYDROCHLORIDE [Suspect]
     Active Substance: LERCANIDIPINE HYDROCHLORIDE
     Route: 065
  726. LERCANIDIPINE HYDROCHLORIDE [Suspect]
     Active Substance: LERCANIDIPINE HYDROCHLORIDE
     Route: 065
  727. LERCANIDIPINE HYDROCHLORIDE [Suspect]
     Active Substance: LERCANIDIPINE HYDROCHLORIDE
     Route: 065
  728. LERCANIDIPINE HYDROCHLORIDE [Suspect]
     Active Substance: LERCANIDIPINE HYDROCHLORIDE
     Route: 065
  729. LERCANIDIPINE HYDROCHLORIDE [Suspect]
     Active Substance: LERCANIDIPINE HYDROCHLORIDE
     Route: 065
  730. LERCANIDIPINE HYDROCHLORIDE [Suspect]
     Active Substance: LERCANIDIPINE HYDROCHLORIDE
     Route: 065
  731. LERCANIDIPINE HYDROCHLORIDE [Suspect]
     Active Substance: LERCANIDIPINE HYDROCHLORIDE
     Route: 065
  732. LERCANIDIPINE HYDROCHLORIDE [Suspect]
     Active Substance: LERCANIDIPINE HYDROCHLORIDE
     Route: 065
  733. LERCANIDIPINE HYDROCHLORIDE [Suspect]
     Active Substance: LERCANIDIPINE HYDROCHLORIDE
     Route: 065

REACTIONS (3)
  - Dermatitis exfoliative generalised [Unknown]
  - Rubber sensitivity [Unknown]
  - Incorrect route of product administration [Recovered/Resolved]
